FAERS Safety Report 15065782 (Version 2)
Quarter: 2018Q4

REPORT INFORMATION
  Report Type: Spontaneous
  Country: US (occurrence: US)
  Receive Date: 20180626
  Receipt Date: 20181224
  Transmission Date: 20190204
  Serious: No
  Sender: FDA-Public Use
  Company Number: PHEH2018US025586

PATIENT
  Age: 53 Year
  Sex: Male

DRUGS (1)
  1. PROMACTA [Suspect]
     Active Substance: ELTROMBOPAG OLAMINE
     Indication: IMMUNE THROMBOCYTOPENIC PURPURA
     Dosage: 75 MG, QD
     Route: 048
     Dates: start: 20180504

REACTIONS (3)
  - Gastric disorder [Unknown]
  - Fatigue [Unknown]
  - Gastritis [Unknown]

NARRATIVE: CASE EVENT DATE: 20180524
